FAERS Safety Report 24814433 (Version 1)
Quarter: 2025Q1

REPORT INFORMATION
  Report Type: Spontaneous
  Country: GB (occurrence: GB)
  Receive Date: 20250107
  Receipt Date: 20250107
  Transmission Date: 20250409
  Serious: Yes (Hospitalization, Other)
  Sender: ACCORD
  Company Number: GB-Accord-462334

PATIENT
  Age: 9 Decade
  Sex: Female

DRUGS (3)
  1. ITRACONAZOLE [Suspect]
     Active Substance: ITRACONAZOLE
     Indication: Histoplasmosis
  2. DEXAMETHASONE [Concomitant]
     Active Substance: DEXAMETHASONE
     Indication: Histoplasmosis
  3. AMPHOTERICIN B [Concomitant]
     Active Substance: AMPHOTERICIN B
     Indication: Histoplasmosis

REACTIONS (1)
  - Nephropathy toxic [Unknown]
